FAERS Safety Report 15723349 (Version 2)
Quarter: 2019Q2

REPORT INFORMATION
  Report Type: Spontaneous
  Country: US (occurrence: US)
  Receive Date: 20181214
  Receipt Date: 20190527
  Transmission Date: 20190711
  Serious: Yes (Other)
  Sender: FDA-Public Use
  Company Number: US-SA-2018SA337176

PATIENT
  Age: 59 Year
  Sex: Female
  Weight: 104.55 kg

DRUGS (5)
  1. HERCEPTIN [Concomitant]
     Active Substance: TRASTUZUMAB
     Dosage: UNK UNK, UNK
     Route: 065
  2. TAXOTERE [Suspect]
     Active Substance: DOCETAXEL
     Indication: BREAST CANCER
     Dosage: 150 MG, Q3W
     Route: 042
     Dates: start: 20100211, end: 20100211
  3. ANZEMET [Concomitant]
     Active Substance: DOLASETRON MESYLATE
     Dosage: 100 MG, Q3W
     Route: 042
     Dates: start: 20100301, end: 20100301
  4. TAXOTERE [Suspect]
     Active Substance: DOCETAXEL
     Dosage: 150 MG, Q3W
     Route: 042
     Dates: start: 20100527, end: 20100527
  5. PARAPLATIN [Concomitant]
     Active Substance: CARBOPLATIN
     Dosage: 600 MG, Q3W
     Route: 065
     Dates: start: 20100301, end: 20100301

REACTIONS (6)
  - Anxiety [Unknown]
  - Pain [Unknown]
  - Psychological trauma [Unknown]
  - Alopecia [Recovering/Resolving]
  - Impaired quality of life [Unknown]
  - Emotional distress [Unknown]

NARRATIVE: CASE EVENT DATE: 20100311
